FAERS Safety Report 9517025 (Version 1)
Quarter: 2013Q1

REPORT INFORMATION
  Report Type: Spontaneous
  Country: US (occurrence: None)
  Receive Date: 20130305
  Receipt Date: 20130305
  Transmission Date: 20140127
  Serious: Yes (Other)
  Sender: FDA-Public Use
  Company Number: 163-21880-11122585

PATIENT
  Age: 71 Year
  Sex: Male

DRUGS (1)
  1. REVLIMID [Suspect]
     Indication: MYELOFIBROSIS
     Dosage: DAILY FOR 21 DAYS
     Route: 048
     Dates: start: 20111117, end: 20111128

REACTIONS (2)
  - White blood cell count decreased [None]
  - Neutrophil count decreased [None]
